FAERS Safety Report 9918254 (Version 3)
Quarter: 2014Q2

REPORT INFORMATION
  Report Type: Spontaneous
  Country: JP (occurrence: JP)
  Receive Date: 20140224
  Receipt Date: 20140528
  Transmission Date: 20141212
  Serious: Yes (Death, Other)
  Sender: FDA-Public Use
  Company Number: JP-ROCHE-1352622

PATIENT
  Age: 70 Year
  Sex: Male

DRUGS (10)
  1. ACTEMRA [Suspect]
     Indication: RHEUMATOID ARTHRITIS
     Dosage: LAST DOSE PRIOR TO SERIOUS ADVERSE EVENT: 27/AUG/2013
     Route: 058
  2. GOLIMUMAB [Suspect]
     Indication: RHEUMATOID ARTHRITIS
     Dosage: LAST DOSE PRIOR TO SERIOUS ADVERSE EVENT: 12/JUL/2013
     Route: 058
     Dates: start: 20120731
  3. TACROLIMUS HYDRATE [Suspect]
     Indication: RHEUMATOID ARTHRITIS
     Dosage: LAST DOSE PRIOR TO SERIOUS ADVERSE EVENT:13/AUG/2013
     Route: 065
  4. AZATHIOPRINE [Suspect]
     Indication: RHEUMATOID ARTHRITIS
     Dosage: LAST DOSE: 10/SEP/2013
     Route: 048
     Dates: start: 20120628
  5. METHYLPREDNISOLONE SODIUM SUCCINATE [Suspect]
     Indication: DIABETES MELLITUS
     Route: 065
  6. METHYLPREDNISOLONE SODIUM SUCCINATE [Suspect]
     Route: 065
  7. METHYLPREDNISOLONE SODIUM SUCCINATE [Suspect]
     Route: 065
  8. GLIMEPIRIDE [Suspect]
     Indication: DIABETES MELLITUS
     Route: 048
  9. PREDNISOLONE [Concomitant]
     Route: 065
     Dates: start: 201103
  10. ENTECAVIR HYDRATE [Concomitant]
     Route: 065

REACTIONS (9)
  - Hepatitis B [Fatal]
  - Bacterial infection [Fatal]
  - Cardiac arrest [Fatal]
  - Hepatic failure [Fatal]
  - Renal disorder [Recovered/Resolved]
  - Hypoglycaemia [Recovered/Resolved]
  - Altered state of consciousness [Recovered/Resolved]
  - Peripheral swelling [Unknown]
  - Pain in extremity [Unknown]
